FAERS Safety Report 9013723 (Version 1)
Quarter: 2013Q1

REPORT INFORMATION
  Report Type: Spontaneous
  Country: US (occurrence: None)
  Receive Date: 20130108
  Receipt Date: 20130108
  Transmission Date: 20140127
  Serious: Yes (Other)
  Sender: FDA-Public Use
  Company Number: None

PATIENT
  Age: 58 Year
  Sex: Male

DRUGS (1)
  1. ACTOS [Suspect]
     Dosage: ORAL
     Route: 048

REACTIONS (2)
  - Dysuria [None]
  - Pollakiuria [None]
